FAERS Safety Report 6292468-3 (Version None)
Quarter: 2009Q3

REPORT INFORMATION
  Report Type: 
  Country: None (occurrence: None)
  Receive Date: 20090731
  Receipt Date: 20090720
  Transmission Date: 20100115
  Serious: Yes (Death)
  Sender: FDA-Public Use
  Company Number: GB-PFIZER INC-2009238067

PATIENT

DRUGS (3)
  1. SOMATROPIN [Suspect]
     Indication: HYPOPITUITARISM
     Dosage: 0.5 MG, UNK
     Dates: start: 20040727
  2. HYDROCORTISONE [Concomitant]
     Dosage: 10 MG, 2X/DAY
     Route: 048
     Dates: start: 19920201
  3. LEVOTHYROXINE SODIUM [Concomitant]
     Dosage: 125 UG, 1X/DAY
     Route: 048
     Dates: start: 19920301

REACTIONS (1)
  - DEATH [None]
